FAERS Safety Report 6233123-5 (Version None)
Quarter: 2009Q2

REPORT INFORMATION
  Report Type: 
  Country: None (occurrence: None)
  Receive Date: 20090616
  Receipt Date: 20090616
  Transmission Date: 20091009
  Serious: Yes (Hospitalization)
  Sender: FDA-Public Use
  Company Number: None

PATIENT
  Age: 20 Year
  Sex: Male
  Weight: 64 kg

DRUGS (3)
  1. ACETAMINOPHEN [Suspect]
     Indication: PAIN
     Dosage: 12 TAB ONCE PO
     Route: 048
     Dates: start: 20090613, end: 20090613
  2. ACETAMINOPHEN [Suspect]
     Indication: PYREXIA
     Dosage: 12 TAB ONCE PO
     Route: 048
     Dates: start: 20090613, end: 20090613
  3. AMOXICILLIN AND CLAVULANATE POTASSIUM [Suspect]
     Indication: EAR INFECTION
     Dosage: 20 TAB ONCE PO
     Route: 048
     Dates: start: 20090613, end: 20090613

REACTIONS (1)
  - MULTIPLE DRUG OVERDOSE [None]
